FAERS Safety Report 20635961 (Version 1)
Quarter: 2022Q1

REPORT INFORMATION
  Report Type: Spontaneous
  Country: DK (occurrence: DK)
  Receive Date: 20220325
  Receipt Date: 20220325
  Transmission Date: 20220424
  Serious: Yes (Hospitalization)
  Sender: FDA-Public Use
  Company Number: None

PATIENT
  Age: 89 Year
  Sex: Female
  Weight: 55 kg

DRUGS (9)
  1. TEGRETOL [Suspect]
     Active Substance: CARBAMAZEPINE
     Indication: Trigeminal neuralgia
     Dosage: 100 MG, QD
     Route: 048
     Dates: start: 20220208, end: 20220214
  2. TEGRETOL [Suspect]
     Active Substance: CARBAMAZEPINE
     Dosage: 200 MG
     Route: 048
     Dates: start: 20220215, end: 20220301
  3. LOSARTAN [Concomitant]
     Active Substance: LOSARTAN
     Indication: Hypertension
     Dosage: UNK
     Route: 065
     Dates: start: 20190325
  4. METFORMIN [Concomitant]
     Active Substance: METFORMIN HYDROCHLORIDE
     Indication: Type 2 diabetes mellitus
     Dosage: UNK
     Route: 048
     Dates: start: 20170306
  5. SIMVASTATIN [Concomitant]
     Active Substance: SIMVASTATIN
     Indication: Hypercholesterolaemia
     Dosage: UNK
     Route: 065
     Dates: start: 20150317
  6. HJERTEMAGNYL [Concomitant]
     Indication: Thrombosis prophylaxis
     Dosage: UNK
     Route: 065
     Dates: start: 20181024
  7. BETOLVEX [Concomitant]
     Indication: Vitamin B12 deficiency
     Dosage: UNK
     Route: 065
     Dates: start: 20190326
  8. IMIPRAMINE [Concomitant]
     Active Substance: IMIPRAMINE
     Indication: Depression
     Dosage: UNK
     Route: 065
     Dates: start: 20190930
  9. AMLODIPINE BESYLATE [Concomitant]
     Active Substance: AMLODIPINE BESYLATE
     Indication: Hypertension
     Dosage: UNK
     Route: 065
     Dates: start: 20190327

REACTIONS (6)
  - Hypophagia [Unknown]
  - Muscular weakness [Unknown]
  - General physical health deterioration [Unknown]
  - Confusional state [Recovered/Resolved]
  - Fluid intake reduced [Unknown]
  - Hyponatraemia [Recovered/Resolved]

NARRATIVE: CASE EVENT DATE: 20220201
